FAERS Safety Report 9444210 (Version 2)
Quarter: 2013Q3

REPORT INFORMATION
  Report Type: Spontaneous
  Country: US (occurrence: None)
  Receive Date: 20130724
  Receipt Date: 20130801
  Transmission Date: 20140515
  Serious: Yes (Other)
  Sender: FDA-Public Use
  Company Number: 2012031863

PATIENT
  Age: 52 Year
  Sex: Female
  Weight: 73.48 kg

DRUGS (26)
  1. HIZENTRA [Suspect]
     Indication: IMMUNODEFICIENCY COMMON VARIABLE
     Dosage: 1X/WEEK,?2 GM?10?ML 1-4 SITES OVER 1.5 TO 2 HOURS,?10 GM (50 ML) EVERY WEEK?SUBCUTANEOUS),?
     Route: 058
     Dates: start: 20120328, end: 20120328
  2. DIPHENHYDRAMINE (DIPHENHYDRAMINE) [Concomitant]
  3. EPI-PEN (EPINEPHRINE) [Concomitant]
  4. CENTRUM (CENTRUM /00554501/) [Concomitant]
  5. LASIX (FUROSEMIDE) [Concomitant]
  6. COUMADIN (WARFARIN SODIUM) [Concomitant]
  7. ZITHROMAX (AZITHROMYCIN) [Concomitant]
  8. POTASSIUM CHLORIDE (POTASSIUM CHLORIDE) [Concomitant]
  9. SUCRALAFATE (SUCRALFATE) [Concomitant]
  10. LISINOPRIL (LISINOPRIL) [Concomitant]
  11. DIAZEPAM (DIAZEPAM) [Concomitant]
  12. BENADRYL (DIPHENHYDRAMINE HYDROCHLORIDE) [Concomitant]
  13. ENULOSE (LACTULOSE [Concomitant]
  14. TOPAMAX (TOPIRAMATE) [Concomitant]
  15. ROCALTROL (CALCITRIOL) [Concomitant]
  16. OSTEO BI-FLEX (OSTEO BI-FLEX) [Concomitant]
  17. ACETAMINOPHEN\HYDROCODONE BITARTRATE [Concomitant]
  18. OXYGEN (OXYGEN) [Concomitant]
  19. SERTRALINE (SERTRALINE) [Concomitant]
  20. ZOFRAN (ONDANSETRON) [Concomitant]
  21. METOPROLOL (METOPROLOL) [Concomitant]
  22. METHADOSE (METHADONE HYDROCHLORIDE) [Concomitant]
  23. MAG-OXIDE (MAGNESIUM OXIDE) [Concomitant]
  24. CENTRUM SILVER (CENTRUM SILVER) [Concomitant]
  25. POTASSIUM (POTASSIUM) [Concomitant]
  26. ACETAMINOPHEN (PARACETAMOL) [Concomitant]

REACTIONS (8)
  - Fatigue [None]
  - Chills [None]
  - Pyrexia [None]
  - Headache [None]
  - Nausea [None]
  - Vomiting [None]
  - Somnolence [None]
  - Cerebrovascular accident [None]
